FAERS Safety Report 11394255 (Version 1)
Quarter: 2015Q3

REPORT INFORMATION
  Report Type: Spontaneous
  Country: FR (occurrence: None)
  Receive Date: 20150817
  Receipt Date: 20150817
  Transmission Date: 20151125
  Serious: Yes (Hospitalization)
  Sender: FDA-Public Use
  Company Number: 2015PL000167

PATIENT
  Age: 1 Year
  Sex: Male

DRUGS (2)
  1. CH14.18 (UT-CH14.18 / NCI-CH14.18) INFUSION [Suspect]
     Active Substance: DINUTUXIMAB
     Indication: NEUROBLASTOMA
     Dosage: 20 MG, SEE NARRATIVE
  2. PROLEUKIN [Suspect]
     Active Substance: ALDESLEUKIN
     Indication: NEUROBLASTOMA
     Dosage: 6 MILLION IU, SEE NARRATIVE
     Route: 058

REACTIONS (5)
  - Necrotising colitis [None]
  - Pneumatosis intestinalis [None]
  - Portal venous gas [None]
  - Influenza like illness [None]
  - Ascites [None]

NARRATIVE: CASE EVENT DATE: 201209
